FAERS Safety Report 5795359-7 (Version None)
Quarter: 2008Q2

REPORT INFORMATION
  Report Type: 
  Country: None (occurrence: None)
  Receive Date: 20080626
  Receipt Date: 20080611
  Transmission Date: 20081010
  Serious: Yes (Other)
  Sender: FDA-Public Use
  Company Number: CIP08001079

PATIENT
  Age: 65 Year
  Sex: Female
  Weight: 59.9 kg

DRUGS (12)
  1. ACTONEL [Suspect]
     Indication: BACK PAIN
     Dosage: 35 MG, 1 /WEEK, ORAL
     Route: 048
     Dates: start: 20070525, end: 20080602
  2. PLACEBO() [Suspect]
     Dosage: 2 UG, 1 /DAY, SUBCUTANEOUS
     Route: 058
  3. TOPROL-XL [Concomitant]
  4. TAMOXIFEN CITRATE [Concomitant]
  5. CLONIDINE [Concomitant]
  6. FLEXERIL /00428402/ (CYCLOBENZAPRINE HYDROCHLORIDE) [Concomitant]
  7. ASPIRIN [Concomitant]
  8. TRAZODONE HCL [Concomitant]
  9. COMBIVENT /01033501/ (SALBUTAMOL, IPRATROPIUM BROMIDE) [Concomitant]
  10. LORTAB	/00607101/ (PARACETAMOL, HYDROCODONE BITARTRATE) [Concomitant]
  11. CALCIUM WITH VITAMIN D /00944201/ (COLECALCIFEROL, CALCIUM CARBONATE) [Concomitant]
  12. KLONOPIN [Concomitant]

REACTIONS (5)
  - BACK PAIN [None]
  - BONE MARROW DISORDER [None]
  - BONE MARROW TUMOUR CELL INFILTRATION [None]
  - CONDITION AGGRAVATED [None]
  - NEOPLASM MALIGNANT [None]
